FAERS Safety Report 10080913 (Version 1)
Quarter: 2014Q2

REPORT INFORMATION
  Report Type: Spontaneous
  Country: US (occurrence: None)
  Receive Date: 20140414
  Receipt Date: 20140414
  Transmission Date: 20141212
  Serious: Yes (Disabling, Other)
  Sender: FDA-Public Use
  Company Number: AUR-APL-2014-04451

PATIENT
  Age: 89 Year
  Sex: Male

DRUGS (1)
  1. OXYCODONE+PARACETAMOL (PARACETAMOL, OXYCODONE) [Suspect]
     Indication: PAIN

REACTIONS (4)
  - Headache [None]
  - Somnolence [None]
  - Activities of daily living impaired [None]
  - Product substitution issue [None]
